FAERS Safety Report 18879608 (Version 1)
Quarter: 2021Q1

REPORT INFORMATION
  Report Type: Spontaneous
  Country: AU (occurrence: AU)
  Receive Date: 20210211
  Receipt Date: 20210211
  Transmission Date: 20210420
  Serious: Yes (Other)
  Sender: FDA-Public Use
  Company Number: AU-SUN PHARMACEUTICAL INDUSTRIES LTD-2021RR-280583

PATIENT
  Age: 23 Year

DRUGS (3)
  1. SPIRONOLACTONE. [Suspect]
     Active Substance: SPIRONOLACTONE
     Indication: TRANSGENDER HORMONAL THERAPY
     Dosage: UNK
     Route: 065
  2. MEDROXYPROGESTERONE [Suspect]
     Active Substance: MEDROXYPROGESTERONE
     Indication: TRANSGENDER HORMONAL THERAPY
     Dosage: UNK
     Route: 065
  3. ESTRADIOL. [Suspect]
     Active Substance: ESTRADIOL
     Indication: TRANSGENDER HORMONAL THERAPY
     Dosage: IMPLANTS INSERTED 6?12 MONTHLY
     Route: 065

REACTIONS (2)
  - Prolactin-producing pituitary tumour [Recovering/Resolving]
  - Hyperprolactinaemia [Recovering/Resolving]
